FAERS Safety Report 7809559-5 (Version None)
Quarter: 2011Q4

REPORT INFORMATION
  Report Type: 
  Country: None (occurrence: None)
  Receive Date: 20111012
  Receipt Date: 20111005
  Transmission Date: 20120403
  Serious: Yes (Other)
  Sender: FDA-Public Use
  Company Number: PHHY2010CA38892

PATIENT
  Sex: Female

DRUGS (1)
  1. SANDOSTATIN LAR [Suspect]
     Indication: CARCINOID TUMOUR
     Dosage: 40 MG, EVERY 4 WEEKS
     Route: 030
     Dates: start: 20090320

REACTIONS (6)
  - NAUSEA [None]
  - URINARY TRACT INFECTION [None]
  - COUGH [None]
  - PNEUMONIA [None]
  - DIARRHOEA [None]
  - PULMONARY CONGESTION [None]
